FAERS Safety Report 7301172-1 (Version None)
Quarter: 2011Q1

REPORT INFORMATION
  Report Type: 
  Country: None (occurrence: None)
  Receive Date: 20110218
  Receipt Date: 20110216
  Transmission Date: 20110831
  Serious: Yes (Other)
  Sender: FDA-Public Use
  Company Number: IT-BRISTOL-MYERS SQUIBB COMPANY-15518129

PATIENT
  Age: 83 Year
  Sex: Female

DRUGS (6)
  1. ASPIRIN [Suspect]
     Route: 048
  2. DILATREND [Concomitant]
     Route: 048
  3. ALISKIREN FUMARATE [Concomitant]
     Route: 048
  4. CORDARONE [Concomitant]
     Route: 048
  5. COUMADIN [Suspect]
     Indication: ATRIAL FIBRILLATION
     Dosage: INTERRUPTED:25JAN2011
     Dates: start: 20070916
  6. APROVEL [Concomitant]
     Route: 048

REACTIONS (2)
  - APHAGIA [None]
  - INTERNATIONAL NORMALISED RATIO INCREASED [None]
